FAERS Safety Report 8247794-5 (Version None)
Quarter: 2012Q1

REPORT INFORMATION
  Report Type: 
  Country: None (occurrence: None)
  Receive Date: 20120330
  Receipt Date: 20120326
  Transmission Date: 20120608
  Serious: No
  Sender: FDA-Public Use
  Company Number: US-TEVA-330238USA

PATIENT
  Sex: Female

DRUGS (2)
  1. ORAP [Suspect]
     Indication: TOURETTE'S DISORDER
     Route: 048
  2. BENZTROPINE MESYLATE [Suspect]

REACTIONS (4)
  - THERAPEUTIC RESPONSE UNEXPECTED [None]
  - FEAR [None]
  - ABDOMINAL PAIN [None]
  - DYSKINESIA [None]
